FAERS Safety Report 23059563 (Version 1)
Quarter: 2023Q4

REPORT INFORMATION
  Report Type: Report from Study
  Country: MX (occurrence: MX)
  Receive Date: 20231012
  Receipt Date: 20231012
  Transmission Date: 20240110
  Serious: Yes (Life-Threatening)
  Sender: FDA-Public Use
  Company Number: MX-002147023-NVSC2021MX241775

PATIENT

DRUGS (3)
  1. RUXOLITINIB [Suspect]
     Active Substance: RUXOLITINIB
     Indication: Polycythaemia vera
     Dosage: 20 MG, QD
     Route: 048
     Dates: start: 201409, end: 202101
  2. RUXOLITINIB [Suspect]
     Active Substance: RUXOLITINIB
     Dosage: 1 DF, Q48H
     Route: 065
     Dates: start: 202101
  3. LEVOTHYROXINE SODIUM [Concomitant]
     Active Substance: LEVOTHYROXINE SODIUM
     Indication: Autoimmune thyroiditis
     Dosage: 75 MG, QD (1 DF, 14 YEARS AGO)
     Route: 048

REACTIONS (6)
  - Blood pressure abnormal [Unknown]
  - Haematocrit abnormal [Unknown]
  - Haemoglobin abnormal [Unknown]
  - Platelet count abnormal [Unknown]
  - Inappropriate schedule of product administration [Unknown]
  - Product use issue [Unknown]

NARRATIVE: CASE EVENT DATE: 20140901
